FAERS Safety Report 7340690-7 (Version None)
Quarter: 2011Q1

REPORT INFORMATION
  Report Type: 
  Country: None (occurrence: None)
  Receive Date: 20110309
  Receipt Date: 20110228
  Transmission Date: 20110831
  Serious: Yes (Hospitalization)
  Sender: FDA-Public Use
  Company Number: US-AMGEN-USASP2011011269

PATIENT
  Age: 52 Year
  Sex: Male

DRUGS (2)
  1. ENBREL [Suspect]
  2. ENBREL [Suspect]
     Indication: ANKYLOSING SPONDYLITIS
     Dosage: 50 MG, QWK
     Dates: start: 20050824, end: 20100219

REACTIONS (14)
  - DYSPNOEA [None]
  - FUNGAL SEPSIS [None]
  - ANKYLOSING SPONDYLITIS [None]
  - NASOPHARYNGITIS [None]
  - RENAL FAILURE [None]
  - STAPHYLOCOCCAL INFECTION [None]
  - PSEUDOMONAS INFECTION [None]
  - CEREBROVASCULAR ACCIDENT [None]
  - THROMBOSIS [None]
  - PNEUMONIA [None]
  - HYPERSENSITIVITY [None]
  - LUNG INFECTION [None]
  - HAEMORRHAGE [None]
  - H1N1 INFLUENZA [None]
